FAERS Safety Report 9935616 (Version 1)
Quarter: 2014Q1

REPORT INFORMATION
  Report Type: Spontaneous
  Country: CL (occurrence: CL)
  Receive Date: 20140228
  Receipt Date: 20140228
  Transmission Date: 20141002
  Serious: Yes (Death, Other)
  Sender: FDA-Public Use
  Company Number: PHHY2014CL022069

PATIENT
  Age: 47 Year
  Sex: Female

DRUGS (10)
  1. OXALIPLATIN [Suspect]
     Indication: NEUROENDOCRINE CARCINOMA METASTATIC
     Dosage: 85 MG/M2, UNK
  2. OXALIPLATIN [Suspect]
     Indication: CHEMOTHERAPY
  3. 5-FLUOROURACIL [Suspect]
     Indication: NEUROENDOCRINE CARCINOMA METASTATIC
     Dosage: 400 MG/M2, UNK
     Route: 040
  4. 5-FLUOROURACIL [Suspect]
     Indication: CHEMOTHERAPY
     Dosage: 1200 MG/M2, UNK
     Route: 042
  5. LEUCOVORIN CALCIUM [Suspect]
     Indication: NEUROENDOCRINE CARCINOMA METASTATIC
     Dosage: 200 MG/M2, UNK
  6. LEUCOVORIN CALCIUM [Suspect]
     Indication: CHEMOTHERAPY
  7. CISPLATIN [Suspect]
     Indication: METASTASES TO LIVER
     Dosage: 100 MG/M2, UNK
  8. ETOPOSIDE [Suspect]
     Indication: METASTASES TO LIVER
     Dosage: 100 MG/M2, UNK
  9. BEVACIZUMAB [Suspect]
     Indication: NEUROENDOCRINE CARCINOMA METASTATIC
     Dosage: 5 MG/KG, EVERY OTHER WEEK
  10. BEVACIZUMAB [Suspect]
     Indication: CHEMOTHERAPY

REACTIONS (5)
  - Death [Fatal]
  - Neuropathy peripheral [Unknown]
  - Neuroendocrine carcinoma metastatic [Unknown]
  - Malignant neoplasm progression [Unknown]
  - Drug effect incomplete [Unknown]
